FAERS Safety Report 9627151 (Version 1)
Quarter: 2013Q4

REPORT INFORMATION
  Report Type: Spontaneous
  Country: GB (occurrence: GB)
  Receive Date: 20131016
  Receipt Date: 20131016
  Transmission Date: 20140711
  Serious: Yes (Other)
  Sender: FDA-Public Use
  Company Number: GB-NAPPMUNDI-GBR-2013-0015995

PATIENT
  Age: 48 Year
  Sex: Female

DRUGS (2)
  1. OXYNORM CAPSULES [Suspect]
     Indication: FIBROMYALGIA
     Dosage: 15 MG, Q4H
     Route: 048
  2. DIAZEPAM ACTAVIS [Concomitant]
     Indication: PRODUCT USED FOR UNKNOWN INDICATION
     Dosage: 2 MG, DAILY

REACTIONS (6)
  - Palpitations [Unknown]
  - Night sweats [Unknown]
  - Hot flush [Unknown]
  - Tremor [Unknown]
  - Dyskinesia [Unknown]
  - Malaise [Unknown]
